FAERS Safety Report 24159902 (Version 1)
Quarter: 2024Q3

REPORT INFORMATION
  Report Type: Spontaneous
  Country: ES (occurrence: ES)
  Receive Date: 20240731
  Receipt Date: 20240731
  Transmission Date: 20241016
  Serious: Yes (Other)
  Sender: SANDOZ
  Company Number: ES-CELLTRION INC.-2024ES003282

PATIENT
  Age: 52 Year
  Sex: Female

DRUGS (4)
  1. ADALIMUMAB [Suspect]
     Active Substance: ADALIMUMAB
     Indication: Spondylitis
     Dosage: 40 MILLIGRAM, Q2WK, IN TREATMENT DURING THE PREVIOUS 9 MONTHS
     Route: 058
  2. JANSSEN COVID-19 VACCINE [Suspect]
     Active Substance: AD26.COV2.S
     Indication: COVID-19 prophylaxis
     Dosage: DOSE 1/UNK, 1ST DOSE
     Route: 065
  3. MODERNA COVID-19 VACCINE [Suspect]
     Active Substance: ELASOMERAN
     Indication: Product used for unknown indication
     Dosage: UNK, 2ND DOSE, RECEIVED THE SECOND COVID VACCINE THE PREVIOUS WEEK
     Route: 065
  4. SPIKEVAX (ELASOMERAN) [Suspect]
     Active Substance: ELASOMERAN
     Indication: COVID-19 prophylaxis
     Dosage: DOSE 2, (ADDITIONAL INFORMATION ON DRUG: (SPECIFIC PRODUCT REPORTED: NO, PRODUCT WAS INFERRED)
     Route: 065

REACTIONS (6)
  - Acute generalised exanthematous pustulosis [Recovering/Resolving]
  - Palmoplantar pustulosis [Recovering/Resolving]
  - Skin reaction [Recovering/Resolving]
  - Interchange of vaccine products [Unknown]
  - COVID-19 immunisation [Unknown]
  - Off label use [Unknown]
